FAERS Safety Report 4454739-2 (Version None)
Quarter: 2004Q3

REPORT INFORMATION
  Report Type: 
  Country: None (occurrence: None)
  Receive Date: 20040920
  Receipt Date: 20040920
  Transmission Date: 20050211
  Serious: Yes (Hospitalization)
  Sender: FDA-Public Use
  Company Number: None

PATIENT
  Age: 56 Year
  Sex: Male
  Weight: 78.0187 kg

DRUGS (9)
  1. CELECOXIB  200MG  PHARMACIA [Suspect]
     Indication: RENAL CELL CARCINOMA STAGE UNSPECIFIED
     Dosage: 400MG BID ORAL
     Route: 048
     Dates: end: 20040819
  2. INTERFERON ALPHA [Suspect]
     Dosage: 2 MIU QD SUBCUTANEOUS
     Route: 058
     Dates: end: 20040819
  3. PREVACID [Concomitant]
  4. VALIUM [Concomitant]
  5. ATENOLOL [Concomitant]
  6. VICODIN [Concomitant]
  7. MAXZIDE [Concomitant]
  8. DECADON [Concomitant]
  9. DILANTIN [Concomitant]

REACTIONS (8)
  - BALANCE DISORDER [None]
  - CEREBRAL HAEMORRHAGE [None]
  - CONFUSIONAL STATE [None]
  - DISEASE PROGRESSION [None]
  - DYSARTHRIA [None]
  - DYSPHASIA [None]
  - HEMIPARESIS [None]
  - METASTASES TO CENTRAL NERVOUS SYSTEM [None]
